FAERS Safety Report 24020224 (Version 1)
Quarter: 2024Q2

REPORT INFORMATION
  Report Type: Report from Study
  Country: BR (occurrence: BR)
  Receive Date: 20240627
  Receipt Date: 20240627
  Transmission Date: 20240716
  Serious: Yes (Other)
  Sender: FDA-Public Use
  Company Number: BR-Merck Healthcare KGaA-2023492915

PATIENT
  Sex: Female

DRUGS (2)
  1. INTERFERON BETA-1A [Suspect]
     Active Substance: INTERFERON BETA-1A
     Indication: Multiple sclerosis
     Route: 058
     Dates: start: 20190710
  2. METFORMIN [Concomitant]
     Active Substance: METFORMIN HYDROCHLORIDE
     Indication: Product used for unknown indication
     Dosage: EVERY 12 HOURS

REACTIONS (3)
  - Blood pressure increased [Recovered/Resolved]
  - Plantar fasciitis [Recovering/Resolving]
  - Myalgia [Recovering/Resolving]
